FAERS Safety Report 6448632-3 (Version None)
Quarter: 2009Q4

REPORT INFORMATION
  Report Type: 
  Country: None (occurrence: None)
  Receive Date: 20091120
  Receipt Date: 20091110
  Transmission Date: 20100525
  Serious: Yes (Hospitalization)
  Sender: FDA-Public Use
  Company Number: SE-ELI_LILLY_AND_COMPANY-SE200908006580

PATIENT
  Sex: Male
  Weight: 151.8 kg

DRUGS (5)
  1. BYETTA [Suspect]
     Indication: TYPE 2 DIABETES MELLITUS
     Dosage: 10 UG, 2/D
     Route: 058
     Dates: start: 20090209
  2. METFORMIN [Concomitant]
     Indication: TYPE 2 DIABETES MELLITUS
     Dosage: 1.5 G, 2/D
     Route: 065
  3. METFORMIN [Concomitant]
     Dosage: 3000 MG, UNKNOWN
     Route: 065
     Dates: start: 20050126
  4. SIMVASTATIN [Concomitant]
     Indication: HYPERCHOLESTEROLAEMIA
     Dosage: 40 MG, UNKNOWN
     Route: 065
     Dates: start: 20050501
  5. TROMBYL [Concomitant]
     Indication: DIABETES MELLITUS
     Dosage: 75 MG, UNKNOWN
     Route: 065
     Dates: start: 20050501

REACTIONS (2)
  - MYOCARDIAL INFARCTION [None]
  - WEIGHT DECREASED [None]
